FAERS Safety Report 5079190-6 (Version None)
Quarter: 2006Q3

REPORT INFORMATION
  Report Type: 
  Country: None (occurrence: None)
  Receive Date: 20060808
  Receipt Date: 20060721
  Transmission Date: 20061208
  Serious: Yes (Hospitalization)
  Sender: FDA-Public Use
  Company Number: M-06-0595

PATIENT
  Age: 75 Year
  Sex: Male

DRUGS (14)
  1. PACERONE [Suspect]
     Indication: HEART RATE IRREGULAR
     Dosage: 400 MG, QD, PO
     Route: 048
     Dates: start: 20060601
  2. VYTORIN [Suspect]
     Indication: BLOOD CHOLESTEROL INCREASED
     Dosage: 10MG/20MG, QD, PO
     Route: 048
  3. AMIODARONE [Suspect]
     Indication: HEART RATE IRREGULAR
     Dosage: 800 MG, QD, PO
     Route: 048
  4. AMIODARONE [Suspect]
     Indication: HEART RATE IRREGULAR
     Dosage: 100 MG, QOD, PO
     Route: 048
  5. LANTUS [Concomitant]
  6. KLOR-CON [Concomitant]
  7. DIGITEX [Concomitant]
  8. AVAPRO [Concomitant]
  9. ALLOPURINOL [Concomitant]
  10. FUROSEMIDE [Concomitant]
  11. ISOSORBIDE MONONITRATE [Concomitant]
  12. GLIPIZIDE [Concomitant]
  13. TOPROL-XL [Concomitant]
  14. BUSPIRONE HCL [Concomitant]

REACTIONS (12)
  - BALANCE DISORDER [None]
  - CHEST PAIN [None]
  - DRUG INTERACTION [None]
  - DYSPNOEA [None]
  - GAIT DISTURBANCE [None]
  - HEART RATE INCREASED [None]
  - HYPERHIDROSIS [None]
  - HYPOAESTHESIA [None]
  - MYALGIA [None]
  - NERVOUSNESS [None]
  - SURGICAL PROCEDURE REPEATED [None]
  - SYNCOPE [None]
